FAERS Safety Report 9741514 (Version 2)
Quarter: 2013Q4

REPORT INFORMATION
  Report Type: Spontaneous
  Country: FR (occurrence: FR)
  Receive Date: 20131209
  Receipt Date: 20131227
  Transmission Date: 20140711
  Serious: No
  Sender: FDA-Public Use
  Company Number: FR-ROCHE-1314270

PATIENT
  Age: 18 Year
  Sex: Female

DRUGS (1)
  1. ZELBORAF [Suspect]
     Indication: BRAIN NEOPLASM
     Route: 048
     Dates: start: 20131023

REACTIONS (2)
  - Melanocytic naevus [Not Recovered/Not Resolved]
  - Off label use [Unknown]
